FAERS Safety Report 7854237-X (Version None)
Quarter: 2011Q4

REPORT INFORMATION
  Report Type: 
  Country: None (occurrence: None)
  Receive Date: 20111026
  Receipt Date: 20111013
  Transmission Date: 20120403
  Serious: Yes (Hospitalization)
  Sender: FDA-Public Use
  Company Number: CA-MYLANLABS-2011S1021483

PATIENT
  Age: 2 Year
  Sex: Male
  Weight: 12 kg

DRUGS (1)
  1. LEVOTHYROXINE SODIUM [Suspect]
     Indication: ACCIDENTAL OVERDOSE
     Dosage: DOSAGE UNCERTAIN BUT POTENTIAL MAXIMUM DOSE OF 7.6MG (700 MICROG/KG)
     Route: 048

REACTIONS (8)
  - ACCIDENTAL OVERDOSE [None]
  - PYREXIA [None]
  - SINUS TACHYCARDIA [None]
  - IRRITABILITY [None]
  - AGITATION [None]
  - THIRST [None]
  - SKIN EXFOLIATION [None]
  - ALOPECIA [None]
